FAERS Safety Report 5375387-6 (Version None)
Quarter: 2007Q2

REPORT INFORMATION
  Report Type: 
  Country: None (occurrence: None)
  Receive Date: 20070627
  Receipt Date: 20070613
  Transmission Date: 20071010
  Serious: Yes (Death)
  Sender: FDA-Public Use
  Company Number: 100#03#2007-01913

PATIENT
  Age: 82 Year
  Sex: Female

DRUGS (9)
  1. METHOTREXATE [Suspect]
     Indication: RHEUMATOID ARTHRITIS
     Dosage: 10 MG/WEEK ORAL
     Route: 048
     Dates: start: 20070301, end: 20070401
  2. MONOSAN (ISOSORBIDE MONONITRATE) (ISOSORBIDE) [Concomitant]
  3. MOLSIHEXAL RETARD (MOLSIDOMINE) (MOLSIDOMINE) [Concomitant]
  4. MANINIL (GLIBENCLAMIDE) (GLIBENCLAMIDE) [Concomitant]
  5. VASOCARDIN (METOPROLOL TARTRATE) (METOPROLOL) [Concomitant]
  6. ENAP (ENALAPRIL) (ENALAPRIL) [Concomitant]
  7. LIPANOR (CIPROFIBRATE) (CIPROFIBRATE) [Concomitant]
  8. WARFARIN SODIUM [Concomitant]
  9. FURON (FUROSEMIDE) (FUROSEMIDE) [Concomitant]

REACTIONS (4)
  - BONE MARROW FAILURE [None]
  - BRONCHOPNEUMONIA [None]
  - FEBRILE NEUTROPENIA [None]
  - PANCYTOPENIA [None]
